FAERS Safety Report 20749845 (Version 2)
Quarter: 2024Q1

REPORT INFORMATION
  Report Type: Spontaneous
  Country: JP (occurrence: JP)
  Receive Date: 20220426
  Receipt Date: 20240308
  Transmission Date: 20240409
  Serious: Yes (Hospitalization, Other)
  Sender: FDA-Public Use
  Company Number: JP-TAKEDA-2022TJP040521

PATIENT

DRUGS (4)
  1. ZEJULA [Interacting]
     Active Substance: NIRAPARIB
     Indication: Fallopian tube cancer
     Dosage: 200 MILLIGRAM, QD
     Route: 048
     Dates: start: 2021
  2. ZEJULA [Interacting]
     Active Substance: NIRAPARIB
     Dosage: UNK
     Route: 048
     Dates: end: 2022
  3. ZEJULA [Interacting]
     Active Substance: NIRAPARIB
     Dosage: 100 MILLIGRAM
     Route: 048
  4. CRESTOR [Concomitant]
     Active Substance: ROSUVASTATIN CALCIUM
     Indication: Hyperlipidaemia
     Dosage: UNK
     Route: 048

REACTIONS (4)
  - Cellulitis [Recovered/Resolved]
  - Oral herpes [Recovering/Resolving]
  - Platelet count decreased [Recovered/Resolved]
  - Hypertension [Recovering/Resolving]
